FAERS Safety Report 7606947-7 (Version None)
Quarter: 2011Q3

REPORT INFORMATION
  Report Type: 
  Country: None (occurrence: None)
  Receive Date: 20110706
  Receipt Date: 20110624
  Transmission Date: 20111222
  Serious: Yes (Other)
  Sender: FDA-Public Use
  Company Number: 2010003368

PATIENT
  Age: 83 Year
  Sex: Female

DRUGS (2)
  1. TARCEVA [Suspect]
     Indication: LUNG CARCINOMA CELL TYPE UNSPECIFIED STAGE 0
     Dosage: 100 MG, UID/D. ORAL; 100 MG, UID/QD, ORAL
     Route: 048
     Dates: start: 20100831
  2. TARCEVA [Suspect]
     Indication: LUNG CARCINOMA CELL TYPE UNSPECIFIED STAGE 0
     Dosage: 100 MG, UID/D. ORAL; 100 MG, UID/QD, ORAL
     Route: 048
     Dates: start: 20100806

REACTIONS (3)
  - FALL [None]
  - HIP FRACTURE [None]
  - DIARRHOEA [None]
